FAERS Safety Report 14468057 (Version 1)
Quarter: 2018Q1

REPORT INFORMATION
  Report Type: Spontaneous
  Country: US (occurrence: US)
  Receive Date: 20180131
  Receipt Date: 20180131
  Transmission Date: 20180509
  Serious: No
  Sender: FDA-Public Use
  Company Number: US-PFIZER INC-2018039027

PATIENT
  Age: 70 Year
  Sex: Female

DRUGS (1)
  1. IBRANCE [Suspect]
     Active Substance: PALBOCICLIB
     Indication: DIABETES INSIPIDUS
     Dosage: UNK (FREQUENCY: NEVER FILLED, 100 (PMP ONLY))

REACTIONS (2)
  - Product use in unapproved indication [Unknown]
  - Asthenia [Not Recovered/Not Resolved]
